FAERS Safety Report 4481012-9 (Version None)
Quarter: 2004Q4

REPORT INFORMATION
  Report Type: 
  Country: None (occurrence: None)
  Receive Date: 20041020
  Receipt Date: 20041020
  Transmission Date: 20050328
  Serious: Yes (Life-Threatening, Hospitalization)
  Sender: FDA-Public Use
  Company Number: None

PATIENT
  Age: 66 Year
  Sex: Female
  Weight: 90.3 kg

DRUGS (1)
  1. CETACAINE [Suspect]
     Indication: LOCAL ANAESTHESIA
     Dosage: SPRAY
     Dates: start: 20040223

REACTIONS (1)
  - ACQUIRED METHAEMOGLOBINAEMIA [None]
